FAERS Safety Report 8873931 (Version 1)
Quarter: 2012Q4

REPORT INFORMATION
  Report Type: 
  Country: JP (occurrence: JP)
  Receive Date: 20121030
  Receipt Date: 20121030
  Transmission Date: 20130627
  Serious: Yes (Other)
  Sender: FDA-Public Use
  Company Number: CHPA2012JP011522

PATIENT
  Age: 86 Year
  Sex: Female

DRUGS (3)
  1. PURSENNID [Suspect]
     Route: 048
  2. ADALAT [Concomitant]
     Dosage: Unk, Unk
     Route: 048
  3. PAXIL [Concomitant]
     Dosage: Unk, Unk
     Route: 048

REACTIONS (5)
  - Decreased appetite [Recovered/Resolved]
  - Dysphagia [Recovered/Resolved]
  - Bedridden [Unknown]
  - Fall [Unknown]
  - Vomiting [Recovered/Resolved]
